FAERS Safety Report 10276419 (Version 1)
Quarter: 2014Q3

REPORT INFORMATION
  Report Type: Spontaneous
  Country: US (occurrence: US)
  Receive Date: 20140703
  Receipt Date: 20140703
  Transmission Date: 20150326
  Serious: Yes (Life-Threatening, Hospitalization)
  Sender: FDA-Public Use
  Company Number: PHHY2014US081597

PATIENT
  Age: 43 Year
  Sex: Female

DRUGS (3)
  1. CLOZAPINE. [Suspect]
     Active Substance: CLOZAPINE
     Indication: SCHIZOPHRENIA
     Dosage: 450 MG, DAILY
     Route: 048
  2. CORTICOSTEROIDS [Concomitant]
     Active Substance: CORTICOSTEROID NOS
     Indication: CHRONIC OBSTRUCTIVE PULMONARY DISEASE
     Route: 062
  3. AZITHROMYCIN [Concomitant]
     Active Substance: AZITHROMYCIN ANHYDROUS
     Indication: CHRONIC OBSTRUCTIVE PULMONARY DISEASE
     Dosage: 500 MG, DAILY
     Route: 042

REACTIONS (6)
  - Antipsychotic drug level increased [Unknown]
  - Unresponsive to stimuli [Unknown]
  - Salivary hypersecretion [Unknown]
  - Myoclonus [Unknown]
  - Toxicity to various agents [Unknown]
  - Hypotension [Unknown]
